FAERS Safety Report 18020507 (Version 1)
Quarter: 2020Q3

REPORT INFORMATION
  Report Type: Spontaneous
  Country: US (occurrence: US)
  Receive Date: 20200714
  Receipt Date: 20200714
  Transmission Date: 20201103
  Serious: No
  Sender: FDA-Public Use
  Company Number: US-SA-2020SA178954

PATIENT

DRUGS (1)
  1. FLOMAX [Suspect]
     Active Substance: TAMSULOSIN HYDROCHLORIDE
     Dosage: UNK
     Route: 065

REACTIONS (6)
  - Malaise [Unknown]
  - Swelling face [Unknown]
  - Rash [Unknown]
  - Diarrhoea [Unknown]
  - Hypersensitivity [Unknown]
  - Vomiting [Unknown]
